FAERS Safety Report 21760166 (Version 3)
Quarter: 2023Q4

REPORT INFORMATION
  Report Type: Spontaneous
  Country: DE (occurrence: DE)
  Receive Date: 20221221
  Receipt Date: 20231219
  Transmission Date: 20240109
  Serious: Yes (Hospitalization)
  Sender: FDA-Public Use
  Company Number: DE-002147023-PHHY2019DE007962

PATIENT
  Sex: Male

DRUGS (8)
  1. IBUPROFEN [Suspect]
     Active Substance: IBUPROFEN
     Indication: Axial spondyloarthritis
     Dosage: 300 MILLIGRAM, EVERY WEEK((1 DAY PER WEEK))
     Route: 065
  2. IBUPROFEN [Suspect]
     Active Substance: IBUPROFEN
     Dosage: 200 MILLIGRAM
     Route: 065
  3. IBUPROFEN [Suspect]
     Active Substance: IBUPROFEN
     Dosage: 600 MILLIGRAM, EVERY WEEK((1 DAY PER WEEK))
     Route: 065
     Dates: start: 20201015
  4. IBUPROFEN [Suspect]
     Active Substance: IBUPROFEN
     Dosage: 600 MILLIGRAM, EVERY WEEK((1 DAY PER WEEK))
     Route: 065
     Dates: start: 20201015
  5. COSENTYX [Suspect]
     Active Substance: SECUKINUMAB
     Indication: Ankylosing spondylitis
     Dosage: 150 MILLIGRAM
     Route: 065
     Dates: start: 20180115, end: 20201215
  6. COSENTYX [Suspect]
     Active Substance: SECUKINUMAB
     Indication: Axial spondyloarthritis
     Dosage: 150 MILLIGRAM(Q5W (EVERY 5 WEEKS))
     Route: 065
     Dates: start: 20210215
  7. COSENTYX [Suspect]
     Active Substance: SECUKINUMAB
     Dosage: 300 MILLIGRAM
     Route: 065
  8. COSENTYX [Suspect]
     Active Substance: SECUKINUMAB
     Dosage: 150 MILLIGRAM
     Route: 065
     Dates: start: 20220915

REACTIONS (10)
  - Musculoskeletal pain [Recovered/Resolved]
  - Spinal disorder [Recovered/Resolved]
  - Arthralgia [Recovered/Resolved]
  - Axial spondyloarthritis [Recovered/Resolved]
  - Spinal osteoarthritis [Recovered/Resolved]
  - Back pain [Unknown]
  - Condition aggravated [Recovered/Resolved]
  - Pelvic pain [Recovered/Resolved]
  - Influenza [Unknown]
  - Inappropriate schedule of product administration [Unknown]

NARRATIVE: CASE EVENT DATE: 20181121
